FAERS Safety Report 11260921 (Version 3)
Quarter: 2015Q3

REPORT INFORMATION
  Report Type: Report from Study
  Country: CA (occurrence: CA)
  Receive Date: 20150710
  Receipt Date: 20150903
  Transmission Date: 20151125
  Serious: Yes (Other)
  Sender: FDA-Public Use
  Company Number: CA-ABBVIE-15P-028-1423359-00

PATIENT
  Sex: Male
  Weight: 73.55 kg

DRUGS (2)
  1. TRUVADA [Concomitant]
     Active Substance: EMTRICITABINE\TENOFOVIR DISOPROXIL FUMARATE
     Indication: HIV INFECTION
     Dosage: DAILY DOSE:  200 MG / 300 MG; UNIT DOSE:  200 MG / 300 MG;
     Route: 048
  2. KALETRA [Suspect]
     Active Substance: LOPINAVIR\RITONAVIR
     Indication: ANTIRETROVIRAL THERAPY
     Dosage: DAILY DOSE:  800 MG / 200 MG; UNIT DOSE:  400 MG / 100 MG; FORM STRENGTH:  200 MG / 50 MG.
     Route: 048
     Dates: start: 2004

REACTIONS (3)
  - Pain [Not Recovered/Not Resolved]
  - Herpes zoster [Unknown]
  - Pneumonia [Recovered/Resolved]
